FAERS Safety Report 7380037-3 (Version None)
Quarter: 2011Q1

REPORT INFORMATION
  Report Type: 
  Country: None (occurrence: None)
  Receive Date: 20110324
  Receipt Date: 20110324
  Transmission Date: 20110831
  Serious: Yes (Other)
  Sender: FDA-Public Use
  Company Number: None

PATIENT
  Age: 45 Year
  Sex: Female
  Weight: 108.8633 kg

DRUGS (2)
  1. CYMBALTA [Suspect]
     Indication: POST-TRAUMATIC STRESS DISORDER
     Dosage: 60 MG PO
     Route: 048
     Dates: start: 20070601, end: 20110323
  2. CYMBALTA [Suspect]
     Indication: DEPRESSION
     Dosage: 60 MG PO
     Route: 048
     Dates: start: 20070601, end: 20110323

REACTIONS (9)
  - PANIC ATTACK [None]
  - PARAESTHESIA [None]
  - DEPENDENCE [None]
  - HEADACHE [None]
  - IMPAIRED WORK ABILITY [None]
  - WEIGHT INCREASED [None]
  - DEPRESSION [None]
  - PARANOIA [None]
  - CRYING [None]
